FAERS Safety Report 10913982 (Version 1)
Quarter: 2015Q1

REPORT INFORMATION
  Report Type: Spontaneous
  Country: IT (occurrence: None)
  Receive Date: 20150310
  Receipt Date: 20150310
  Transmission Date: 20150721
  Serious: Yes (Hospitalization)
  Sender: FDA-Public Use
  Company Number: AUR-APL-2014-13290

PATIENT
  Age: 89 Year
  Sex: Female

DRUGS (2)
  1. ALDACTONE [Suspect]
     Active Substance: SPIRONOLACTONE
     Indication: HYPOKALAEMIA
     Route: 048
     Dates: start: 20140101, end: 20140916
  2. RAMIPRIL. [Suspect]
     Active Substance: RAMIPRIL
     Indication: ESSENTIAL HYPERTENSION
     Route: 048
     Dates: start: 20140101, end: 20140916

REACTIONS (3)
  - Hyperkalaemia [None]
  - Condition aggravated [None]
  - Renal failure [None]

NARRATIVE: CASE EVENT DATE: 20140919
